FAERS Safety Report 5634867-6 (Version None)
Quarter: 2008Q1

REPORT INFORMATION
  Report Type: 
  Country: None (occurrence: None)
  Receive Date: 20080221
  Receipt Date: 20080221
  Transmission Date: 20080703
  Serious: No
  Sender: FDA-Public Use
  Company Number: None

PATIENT
  Age: 25 Year
  Sex: Male
  Weight: 88 kg

DRUGS (1)
  1. VANCOMYCIN [Suspect]
     Dosage: 1000
     Dates: start: 20070912, end: 20070912

REACTIONS (1)
  - RED MAN SYNDROME [None]
